FAERS Safety Report 10375022 (Version 1)
Quarter: 2014Q3

REPORT INFORMATION
  Report Type: Spontaneous
  Country: DE (occurrence: DE)
  Receive Date: 20140811
  Receipt Date: 20140811
  Transmission Date: 20150326
  Serious: Yes (Other)
  Sender: FDA-Public Use
  Company Number: DE-SHIRE-DE201404616

PATIENT
  Age: 7 Year
  Sex: Male
  Weight: 22.9 kg

DRUGS (2)
  1. ELVANSE [Suspect]
     Active Substance: LISDEXAMFETAMINE DIMESYLATE
     Indication: ATTENTION DEFICIT/HYPERACTIVITY DISORDER
     Dosage: 30 MG, 1X/DAY:QD (MORNING)
     Route: 048
     Dates: start: 20140618, end: 20140623
  2. ELVANSE [Suspect]
     Active Substance: LISDEXAMFETAMINE DIMESYLATE
     Dosage: 15 MG, 1X/DAY:QD (MORNING)
     Route: 048
     Dates: start: 20140624, end: 20140729

REACTIONS (4)
  - Affect lability [Recovered/Resolved]
  - Delusional perception [Recovered/Resolved]
  - Hallucination, visual [Recovered/Resolved]
  - Drug prescribing error [Recovered/Resolved]

NARRATIVE: CASE EVENT DATE: 20140618
